FAERS Safety Report 9340092 (Version 1)
Quarter: 2013Q2

REPORT INFORMATION
  Report Type: Spontaneous
  Country: FR (occurrence: None)
  Receive Date: 20130605
  Receipt Date: 20130605
  Transmission Date: 20140414
  Serious: Yes (Other)
  Sender: FDA-Public Use
  Company Number: DSM02013-00520

PATIENT
  Age: 50 Year
  Sex: Male

DRUGS (5)
  1. ALTEIS (OLMESARTAN MEDOXOMIL) (TABLET) (OLMESARTAN MEDOXOMIL) [Suspect]
     Indication: HYPERTENSION
     Route: 048
     Dates: start: 20080527
  2. URBANYL [Concomitant]
  3. CRESTOR (ROSUVASTATIN CALCIUM) (TABLET) (ROSUVASTATIN CALCIUM) [Concomitant]
  4. ADENURIC (FEBUXOSTAT) (TABLET) (FEBUXOSTAT) [Concomitant]
  5. OMACOR (OMEGA-3-ACID ETHYL ESTER) (TABLET) (OMEGA-3-ACID ETHYL ESTER) [Concomitant]

REACTIONS (5)
  - Colitis [None]
  - Diarrhoea [None]
  - Nausea [None]
  - Decreased appetite [None]
  - Asthenia [None]
